FAERS Safety Report 5064435-9 (Version None)
Quarter: 2006Q3

REPORT INFORMATION
  Report Type: 
  Country: None (occurrence: None)
  Receive Date: 20060725
  Receipt Date: 20060710
  Transmission Date: 20061208
  Serious: Yes (Hospitalization)
  Sender: FDA-Public Use
  Company Number: 2006S1006331

PATIENT
  Age: 70 Year
  Sex: Male

DRUGS (5)
  1. VINFLUNINE (624 MG) [Suspect]
     Indication: NEOPLASM MALIGNANT
     Dosage: 624 MG; IV
     Route: 042
     Dates: start: 20060125
  2. KETOCONAZOLE [Suspect]
     Indication: NEOPLASM MALIGNANT
     Dosage: 400 MG; Q24; ORO
     Dates: start: 20060103
  3. NEULASTA [Concomitant]
  4. ZOLPIDEM TARTRATE [Concomitant]
  5. VALSARTAN [Concomitant]

REACTIONS (1)
  - UROSEPSIS [None]
